FAERS Safety Report 25622647 (Version 1)
Quarter: 2025Q3

REPORT INFORMATION
  Report Type: Spontaneous
  Country: US (occurrence: US)
  Receive Date: 20250730
  Receipt Date: 20250730
  Transmission Date: 20251021
  Serious: No
  Sender: BAYER HEALTHCARE LLC
  Company Number: US-BAYER-2025A101174

PATIENT
  Age: 75 Year
  Sex: Female

DRUGS (3)
  1. MIRALAX [Suspect]
     Active Substance: POLYETHYLENE GLYCOL 3350
     Indication: Gastrointestinal disorder
     Dosage: UNK, QD, I TAKE HALF A DOSE
     Route: 048
     Dates: start: 2005
  2. MIRALAX [Suspect]
     Active Substance: POLYETHYLENE GLYCOL 3350
     Indication: Constipation
  3. MIRALAX [Suspect]
     Active Substance: POLYETHYLENE GLYCOL 3350
     Indication: Irritable bowel syndrome

REACTIONS (3)
  - Diarrhoea [Unknown]
  - Nausea [Unknown]
  - Incorrect dose administered [None]

NARRATIVE: CASE EVENT DATE: 20050101
